FAERS Safety Report 15090244 (Version 2)
Quarter: 2018Q3

REPORT INFORMATION
  Report Type: Spontaneous
  Country: FR (occurrence: FR)
  Receive Date: 20180629
  Receipt Date: 20180720
  Transmission Date: 20181010
  Serious: Yes (Hospitalization)
  Sender: FDA-Public Use
  Company Number: FR-ORPHAN EUROPE-2051099

PATIENT
  Age: 12 Year
  Sex: Male

DRUGS (1)
  1. CYSTADANE [Suspect]
     Active Substance: BETAINE
     Indication: HOMOCYSTINURIA

REACTIONS (5)
  - Decreased appetite [Unknown]
  - Incoherent [Unknown]
  - Dyskinesia [Unknown]
  - Vertigo [Unknown]
  - Restlessness [Unknown]
